FAERS Safety Report 4286303-2 (Version None)
Quarter: 2004Q1

REPORT INFORMATION
  Report Type: 
  Country: None (occurrence: None)
  Receive Date: 20040115
  Receipt Date: 20021219
  Transmission Date: 20041129
  Serious: Yes (Other)
  Sender: FDA-Public Use
  Company Number: NSADSS2002046581

PATIENT
  Age: 45 Year
  Sex: Male
  Weight: 57.1532 kg

DRUGS (4)
  1. DOXIL [Suspect]
     Indication: MULTIPLE MYELOMA
     Dosage: 66 MG/M2, INTRAVENOUS DRIP
     Route: 041
     Dates: start: 20021101, end: 20021227
  2. VINCRISTINE [Suspect]
     Indication: MULTIPLE MYELOMA
     Dosage: 2 MG, INTRAVENOUS DRIP
     Route: 041
     Dates: start: 20021101, end: 20021206
  3. ZOMETA [Concomitant]
  4. DURAGESIC [Concomitant]

REACTIONS (1)
  - PALMAR-PLANTAR ERYTHRODYSAESTHESIA SYNDROME [None]
